FAERS Safety Report 5803084-9 (Version None)
Quarter: 2008Q3

REPORT INFORMATION
  Report Type: 
  Country: None (occurrence: None)
  Receive Date: 20080701
  Receipt Date: 20080429
  Transmission Date: 20090109
  Serious: Yes (Other)
  Sender: FDA-Public Use
  Company Number: US200804007217

PATIENT
  Sex: Female

DRUGS (3)
  1. HUMULIN N [Suspect]
  2. HUMALOG [Suspect]
     Indication: DIABETES MELLITUS
  3. HUMALOG [Suspect]
     Indication: DIABETES MELLITUS

REACTIONS (4)
  - BACK DISORDER [None]
  - LUNG NEOPLASM MALIGNANT [None]
  - MALAISE [None]
  - MEMORY IMPAIRMENT [None]
